FAERS Safety Report 20625933 (Version 1)
Quarter: 2022Q1

REPORT INFORMATION
  Report Type: Spontaneous
  Country: JP (occurrence: JP)
  Receive Date: 20220323
  Receipt Date: 20220323
  Transmission Date: 20220423
  Serious: Yes (Death, Hospitalization, Other)
  Sender: FDA-Public Use
  Company Number: JP-SA-2022SA093158

PATIENT
  Age: 72 Year
  Sex: Male

DRUGS (4)
  1. CAPECITABINE [Suspect]
     Active Substance: CAPECITABINE
     Indication: Colon cancer metastatic
     Dosage: 1800 MG, BID, ON DAY 1 TO 14
  2. CAPECITABINE [Suspect]
     Active Substance: CAPECITABINE
     Dosage: 6TH THROUGH 8TH COURSES WERE REDUCED TO 160 MG/DAY) WAS PERFORMED EVERY 3 WEEKS FOR 8 COURSES
  3. OXALIPLATIN [Suspect]
     Active Substance: OXALIPLATIN
     Indication: Colon cancer metastatic
     Dosage: 200 MG ON DAY 1, Q3W
  4. OXALIPLATIN [Suspect]
     Active Substance: OXALIPLATIN
     Dosage: 160 MG/DAY, Q3W (REDUCED DOSE)

REACTIONS (5)
  - Acute myeloid leukaemia [Fatal]
  - White blood cell count increased [Fatal]
  - Respiration abnormal [Fatal]
  - Hypoaesthesia [Unknown]
  - Condition aggravated [Unknown]
